FAERS Safety Report 18174294 (Version 1)
Quarter: 2020Q3

REPORT INFORMATION
  Report Type: Spontaneous
  Country: US (occurrence: US)
  Receive Date: 20200819
  Receipt Date: 20200819
  Transmission Date: 20201103
  Serious: No
  Sender: FDA-Public Use
  Company Number: None

PATIENT
  Age: 75 Year
  Sex: Male
  Weight: 68.04 kg

DRUGS (4)
  1. FORTEO [Suspect]
     Active Substance: TERIPARATIDE
     Indication: GASTROOESOPHAGEAL REFLUX DISEASE
     Dosage: ?          OTHER STRENGTH:600MCG/2.4ML, 20MC;?
     Route: 058
     Dates: start: 201904
  2. FORTEO [Suspect]
     Active Substance: TERIPARATIDE
     Indication: SENILE OSTEOPOROSIS
     Dosage: ?          OTHER STRENGTH:600MCG/2.4ML, 20MC;?
     Route: 058
     Dates: start: 201904
  3. FORTEO [Suspect]
     Active Substance: TERIPARATIDE
     Indication: OSTEOPOROTIC FRACTURE
     Dosage: ?          OTHER STRENGTH:600MCG/2.4ML, 20MC;?
     Route: 058
     Dates: start: 201904
  4. FORTEO [Suspect]
     Active Substance: TERIPARATIDE
     Indication: COLITIS ULCERATIVE
     Dosage: ?          OTHER STRENGTH:600MCG/2.4ML, 20MC;?
     Route: 058
     Dates: start: 201904

REACTIONS (2)
  - Therapy cessation [None]
  - Renal failure [None]
